FAERS Safety Report 23888587 (Version 2)
Quarter: 2024Q2

REPORT INFORMATION
  Report Type: Spontaneous
  Country: US (occurrence: US)
  Receive Date: 20240523
  Receipt Date: 20240619
  Transmission Date: 20240716
  Serious: Yes (Other)
  Sender: FDA-Public Use
  Company Number: US-SANDOZ-SDZ2024US047148

PATIENT
  Age: 13 Year
  Sex: Male

DRUGS (1)
  1. ACLASTA [Suspect]
     Active Substance: ZOLEDRONIC ACID
     Indication: Osteogenesis imperfecta
     Dosage: 4 MG,16 TIMES OVER 4 YEARS (64 MG TOTAL)
     Route: 042

REACTIONS (6)
  - Osteosclerosis [Unknown]
  - Osteopetrosis [Unknown]
  - Multiple fractures [Unknown]
  - Bone deformity [Unknown]
  - Osteopenia [Unknown]
  - Product use issue [Unknown]
